FAERS Safety Report 17042771 (Version 1)
Quarter: 2019Q4

REPORT INFORMATION
  Report Type: Spontaneous
  Country: GB (occurrence: GB)
  Receive Date: 20191118
  Receipt Date: 20191118
  Transmission Date: 20200122
  Serious: Yes (Other)
  Sender: FDA-Public Use
  Company Number: GB-PFIZER INC-2019490761

PATIENT
  Age: 25 Year
  Sex: Female

DRUGS (1)
  1. DEPO-PROVERA [Suspect]
     Active Substance: MEDROXYPROGESTERONE ACETATE
     Indication: CONTRACEPTION
     Dosage: UNK
     Route: 051

REACTIONS (7)
  - Amenorrhoea [Recovered/Resolved]
  - Pain [Unknown]
  - Joint dislocation [Unknown]
  - Joint instability [Recovered/Resolved with Sequelae]
  - Abnormal weight gain [Unknown]
  - Fatigue [Unknown]
  - Joint laxity [Unknown]
